FAERS Safety Report 5806776-0 (Version None)
Quarter: 2008Q3

REPORT INFORMATION
  Report Type: 
  Country: None (occurrence: None)
  Receive Date: 20080711
  Receipt Date: 20080703
  Transmission Date: 20090109
  Serious: Yes (Other)
  Sender: FDA-Public Use
  Company Number: BR-JNJFOC-20080701386

PATIENT
  Sex: Male
  Weight: 6.39 kg

DRUGS (3)
  1. TYLENOL (CAPLET) [Suspect]
     Indication: PAIN
  2. TYLENOL (CAPLET) [Suspect]
     Indication: PYREXIA
  3. MYLICON [Concomitant]
     Indication: FLATULENCE

REACTIONS (1)
  - HAEMATOCHEZIA [None]
